FAERS Safety Report 9439175 (Version 1)
Quarter: 2013Q3

REPORT INFORMATION
  Report Type: Spontaneous
  Country: US (occurrence: US)
  Receive Date: 20130802
  Receipt Date: 20130802
  Transmission Date: 20140515
  Serious: Yes (Death)
  Sender: FDA-Public Use
  Company Number: US-JNJFOC-20130718028

PATIENT
  Age: 83 Year
  Sex: Female
  Weight: 69.85 kg

DRUGS (2)
  1. CHILDREN^S TYLENOL [Suspect]
     Indication: PYREXIA
     Dosage: 4 FULL DROPPERS EVERY 4 HOURS
     Route: 048
     Dates: end: 20130615
  2. BENADRYL [Concomitant]
     Indication: MULTIPLE ALLERGIES
     Route: 065

REACTIONS (2)
  - Death [Fatal]
  - Off label use [Fatal]
